FAERS Safety Report 9748268 (Version 1)
Quarter: 2013Q4

REPORT INFORMATION
  Report Type: Spontaneous
  Country: US (occurrence: None)
  Receive Date: 20131211
  Receipt Date: 20131211
  Transmission Date: 20140711
  Serious: Yes (Hospitalization, Other)
  Sender: FDA-Public Use
  Company Number: None

PATIENT
  Age: 45 Year
  Sex: Male
  Weight: 95.26 kg

DRUGS (4)
  1. VIIBRYD [Suspect]
     Indication: MAJOR DEPRESSION
     Route: 048
     Dates: start: 20131101, end: 20131125
  2. TRAZADONE 50MG PO QHS [Concomitant]
  3. KLONIDIN 2MG PO QHS [Concomitant]
  4. CYMBALTA 30MG PO BID [Concomitant]

REACTIONS (6)
  - Depression [None]
  - Anxiety [None]
  - Chills [None]
  - Pain [None]
  - Headache [None]
  - Aggression [None]
